FAERS Safety Report 20558826 (Version 1)
Quarter: 2022Q1

REPORT INFORMATION
  Report Type: Spontaneous
  Country: JP (occurrence: JP)
  Receive Date: 20220307
  Receipt Date: 20220307
  Transmission Date: 20220423
  Serious: Yes (Other)
  Sender: FDA-Public Use
  Company Number: JP-NOVARTISPH-NVSC2022JP049847

PATIENT
  Age: 34 Year
  Sex: Male

DRUGS (1)
  1. DICLOFENAC SODIUM [Suspect]
     Active Substance: DICLOFENAC SODIUM
     Indication: Pyrexia
     Dosage: 25 MG, TID (THREE TIMES A DAY FOR A WEEK)
     Route: 065

REACTIONS (2)
  - Tubulointerstitial nephritis and uveitis syndrome [Unknown]
  - Product use in unapproved indication [Unknown]
